FAERS Safety Report 10541419 (Version 1)
Quarter: 2014Q4

REPORT INFORMATION
  Report Type: Spontaneous
  Country: US (occurrence: None)
  Receive Date: 20141010
  Receipt Date: 20141010
  Transmission Date: 20150529
  Serious: No
  Sender: FDA-Public Use
  Company Number: 163-POMAL-14072562

PATIENT
  Age: 64 Year
  Sex: Male
  Weight: 79.4 kg

DRUGS (2)
  1. POMALYST [Suspect]
     Active Substance: POMALIDOMIDE
     Indication: PLASMA CELL MYELOMA
     Route: 048
     Dates: start: 20130720
  2. TESTOSTERONE CYPIONATE (TESTOSTERONE CIPIONATE) [Concomitant]

REACTIONS (1)
  - Memory impairment [None]
